FAERS Safety Report 8771251 (Version 1)
Quarter: 2012Q4

REPORT INFORMATION
  Report Type: 
  Country: US (occurrence: US)
  Receive Date: 20120906
  Receipt Date: 20120906
  Transmission Date: 20130627
  Serious: No
  Sender: FDA-Public Use
  Company Number: US-BAYER-2012-092157

PATIENT
  Sex: Female

DRUGS (1)
  1. MIRENA [Suspect]
     Dosage: 20 mcg/24hr, CONT
     Route: 015

REACTIONS (7)
  - Weight increased [None]
  - Headache [None]
  - Back pain [None]
  - Mood swings [None]
  - Depression [None]
  - Emotional distress [None]
  - Fluid retention [None]
